FAERS Safety Report 11125727 (Version 3)
Quarter: 2015Q2

REPORT INFORMATION
  Report Type: Spontaneous
  Country: US (occurrence: US)
  Receive Date: 20150520
  Receipt Date: 20150617
  Transmission Date: 20150821
  Serious: Yes (Hospitalization, Other)
  Sender: FDA-Public Use
  Company Number: US-009507513-1201USA00235

PATIENT
  Sex: Female
  Weight: 61.22 kg

DRUGS (2)
  1. FOSAMAX [Suspect]
     Active Substance: ALENDRONATE SODIUM
     Dosage: 70 MG, QW
     Route: 048
     Dates: start: 20040211, end: 20060321
  2. FOSAMAX [Suspect]
     Active Substance: ALENDRONATE SODIUM
     Indication: BONE DENSITY DECREASED
     Dosage: 10 MG, UNK
     Route: 048
     Dates: start: 19981215, end: 19991123

REACTIONS (21)
  - Medical device implantation [Recovered/Resolved]
  - Rib fracture [Unknown]
  - Tonsillectomy [Unknown]
  - Coeliac disease [Unknown]
  - Vitamin D deficiency [Unknown]
  - Joint injury [Unknown]
  - Fracture delayed union [Recovered/Resolved]
  - Lumbar radiculopathy [Unknown]
  - Femur fracture [Recovered/Resolved]
  - Spinal column stenosis [Unknown]
  - Foot fracture [Unknown]
  - Intramedullary rod insertion [Recovered/Resolved]
  - Humerus fracture [Unknown]
  - Bone graft [Recovered/Resolved]
  - Medical device removal [Unknown]
  - Clavicle fracture [Unknown]
  - Implant site pain [Unknown]
  - Osteoporosis [Unknown]
  - Hernia repair [Unknown]
  - Osteopenia [Unknown]
  - Foot fracture [Unknown]

NARRATIVE: CASE EVENT DATE: 20050304
